FAERS Safety Report 5484853-4 (Version None)
Quarter: 2007Q4

REPORT INFORMATION
  Report Type: 
  Country: None (occurrence: None)
  Receive Date: 20071010
  Receipt Date: 20070921
  Transmission Date: 20080405
  Serious: Yes (Hospitalization)
  Sender: FDA-Public Use
  Company Number: 2007RR-10293

PATIENT
  Age: 16 Year

DRUGS (1)
  1. PARACETAMOL/ACETAMNOPHEN [Suspect]
     Dosage: ORAL
     Route: 048

REACTIONS (2)
  - ACUTE HEPATIC FAILURE [None]
  - LIVER TRANSPLANT [None]
